FAERS Safety Report 4476622-9 (Version None)
Quarter: 2004Q4

REPORT INFORMATION
  Report Type: 
  Country: None (occurrence: None)
  Receive Date: 20041015
  Receipt Date: 20041015
  Transmission Date: 20050328
  Serious: Yes (Hospitalization)
  Sender: FDA-Public Use
  Company Number: None

PATIENT
  Sex: Female
  Weight: 68.0396 kg

DRUGS (7)
  1. ACTONEL [Suspect]
     Indication: OSTEOPOROSIS
     Dosage: TABLET   ONCE A WEEK   ORAL
     Route: 048
     Dates: start: 20040909, end: 20041010
  2. VIOXX [Suspect]
     Indication: ARTHRITIS
     Dosage: TABLET   ONCE A DAY   ORAL
     Route: 048
     Dates: start: 20020103, end: 20040927
  3. GLYCOLAX [Concomitant]
  4. ZETIA [Concomitant]
  5. KUTRASE [Concomitant]
  6. DOCUSATE SODIUM [Concomitant]
  7. PREVACID [Concomitant]

REACTIONS (1)
  - MYOCARDIAL INFARCTION [None]
